FAERS Safety Report 12120001 (Version 2)
Quarter: 2016Q3

REPORT INFORMATION
  Report Type: Spontaneous
  Country: FR (occurrence: FR)
  Receive Date: 20160226
  Receipt Date: 20160922
  Transmission Date: 20161109
  Serious: Yes (Hospitalization)
  Sender: FDA-Public Use
  Company Number: FR-TEVA-636264ISR

PATIENT
  Age: 23 Year
  Sex: Male
  Weight: 72 kg

DRUGS (7)
  1. DEPO-MEDROL [Concomitant]
     Active Substance: METHYLPREDNISOLONE ACETATE
     Dosage: DAY 1 OF BLOCK 3 OF THE FIRST CONSOLIDATION ACCORDING TO THE GRAALL 2014/B PROTOCOL
     Route: 037
     Dates: start: 20151218, end: 20151218
  2. ETOPOSIDE TEVA 20MG/ML [Suspect]
     Active Substance: ETOPOSIDE
     Indication: PRECURSOR T-LYMPHOBLASTIC LYMPHOMA/LEUKAEMIA
     Dosage: DAY 1 AND DAY 2 OF BLOCK 3 OF THE FIRST CONSOLIDATION ACCORDING TO THE GRAALL 2014/B PROTOCOL
     Route: 041
     Dates: start: 20151218, end: 20151219
  3. METHOTREXATE BIODIM 25MG/ML [Suspect]
     Active Substance: METHOTREXATE SODIUM
     Indication: PRECURSOR T-LYMPHOBLASTIC LYMPHOMA/LEUKAEMIA
     Dosage: BLOCK 3 OF THE FIRST CONSOLIDATION ACCORDING TO THE GRAALL 2014/B PROTOCOL
     Route: 037
     Dates: start: 20151218, end: 20151218
  4. ENDOXAN 1000MG [Suspect]
     Active Substance: CYCLOPHOSPHAMIDE
     Indication: PRECURSOR T-LYMPHOBLASTIC LYMPHOMA/LEUKAEMIA
     Route: 041
     Dates: start: 20151218, end: 20151219
  5. METHOTREXATE MYLAN 100 MG/ML [Suspect]
     Active Substance: METHOTREXATE
     Indication: PRECURSOR T-LYMPHOBLASTIC LYMPHOMA/LEUKAEMIA
     Dosage: DAY 1 OF BLOCK 3 OF THE FIRST CONSOLIDATION ACCORDING TO THE GRAALL 2014/B PROTOCOL
     Route: 041
     Dates: start: 20151218, end: 20151218
  6. ONDANSETRON ACCORD 2 MG/ML [Concomitant]
     Active Substance: ONDANSETRON
     Route: 041
     Dates: start: 20151218, end: 20151219
  7. ARACYTINE 100MG [Suspect]
     Active Substance: CYTARABINE
     Indication: PRECURSOR T-LYMPHOBLASTIC LYMPHOMA/LEUKAEMIA
     Route: 037
     Dates: start: 20151218, end: 20151218

REACTIONS (2)
  - Bone marrow failure [Recovered/Resolved]
  - Staphylococcal bacteraemia [Recovered/Resolved]

NARRATIVE: CASE EVENT DATE: 201512
